FAERS Safety Report 6238477-1 (Version None)
Quarter: 2009Q2

REPORT INFORMATION
  Report Type: 
  Country: None (occurrence: None)
  Receive Date: 20090622
  Receipt Date: 20090610
  Transmission Date: 20091009
  Serious: Yes (Other)
  Sender: FDA-Public Use
  Company Number: JP-ROCHE-634862

PATIENT
  Sex: Male
  Weight: 52 kg

DRUGS (16)
  1. XELODA [Suspect]
     Indication: COLON CANCER
     Route: 048
     Dates: start: 20081210, end: 20090414
  2. XELODA [Suspect]
     Dosage: DRUG REPORTED: XELODA 300
     Route: 048
     Dates: end: 20090428
  3. MEXITIL [Concomitant]
     Indication: ANGINA PECTORIS
     Route: 048
     Dates: start: 20090401, end: 20090514
  4. AMLODIPINE [Concomitant]
     Route: 048
     Dates: start: 20050101
  5. CRESTOR [Concomitant]
     Route: 048
     Dates: start: 20050101
  6. ACTOS [Concomitant]
     Route: 048
     Dates: start: 20050101
  7. DAI-KENCHU-TO [Concomitant]
     Route: 048
     Dates: start: 20081101
  8. MAGMITT [Concomitant]
     Route: 048
     Dates: start: 20081101
  9. FORSENID [Concomitant]
     Route: 048
     Dates: start: 20081101
  10. PYDOXAL [Concomitant]
     Route: 048
     Dates: start: 20081201
  11. UREPEARL [Concomitant]
     Route: 061
     Dates: start: 20081201
  12. RHYTHMY [Concomitant]
     Route: 048
     Dates: start: 20081201
  13. ASPIRIN [Concomitant]
     Dosage: FORM: ENTERIC.
     Route: 048
     Dates: start: 20090311
  14. PLAVIX [Concomitant]
     Route: 048
     Dates: start: 20090311
  15. TAKEPRON [Concomitant]
     Route: 048
     Dates: start: 20090311
  16. TENORMIN [Concomitant]
     Route: 048
     Dates: start: 20090401

REACTIONS (1)
  - STEVENS-JOHNSON SYNDROME [None]
